FAERS Safety Report 7468599-9 (Version None)
Quarter: 2011Q2

REPORT INFORMATION
  Report Type: 
  Country: None (occurrence: None)
  Receive Date: 20110510
  Receipt Date: 20110304
  Transmission Date: 20111010
  Serious: No
  Sender: FDA-Public Use
  Company Number: US-BAYER-2011-020578

PATIENT
  Age: 74 Year
  Sex: Female

DRUGS (3)
  1. AVELOX [Suspect]
     Indication: SINUSITIS
  2. AVELOX [Suspect]
     Indication: EAR INFECTION
     Dosage: 400 MG, QD
     Route: 048
     Dates: start: 20110223, end: 20110225
  3. AVAPRO [Concomitant]

REACTIONS (2)
  - TREMOR [None]
  - INSOMNIA [None]
